FAERS Safety Report 15239482 (Version 3)
Quarter: 2018Q3

REPORT INFORMATION
  Report Type: Spontaneous
  Country: JP (occurrence: JP)
  Receive Date: 20180803
  Receipt Date: 20180829
  Transmission Date: 20181010
  Serious: Yes (Other)
  Sender: FDA-Public Use
  Company Number: JP-009507513-1708JPN002355J

PATIENT
  Age: 34 Year
  Sex: Female
  Weight: 80 kg

DRUGS (20)
  1. KEYTRUDA [Suspect]
     Active Substance: PEMBROLIZUMAB
     Indication: ADENOSQUAMOUS CELL LUNG CANCER
     Dosage: 200 MG, Q3W
     Route: 041
     Dates: start: 20170608, end: 20180313
  2. MINOCYCLINE HYDROCHLORIDE. [Concomitant]
     Active Substance: MINOCYCLINE HYDROCHLORIDE
     Indication: PROPHYLAXIS
     Dosage: 50 MG, BID
     Route: 048
     Dates: start: 20170608
  3. ROZEREM [Concomitant]
     Active Substance: RAMELTEON
     Dosage: 8.0 MG, QD
     Route: 048
  4. OXYCONTIN [Concomitant]
     Active Substance: OXYCODONE HYDROCHLORIDE
     Dosage: 10 MG, BID
     Route: 048
     Dates: start: 20170908, end: 20180227
  5. PREDNISOLONE. [Concomitant]
     Active Substance: PREDNISOLONE
     Indication: ADENOSQUAMOUS CELL LUNG CANCER
     Dosage: 1.0 MG, QD
     Route: 048
     Dates: end: 20171110
  6. KEYTRUDA [Suspect]
     Active Substance: PEMBROLIZUMAB
     Dosage: 200 MG, Q3W
     Route: 041
     Dates: start: 20180615
  7. DESYREL [Concomitant]
     Active Substance: TRAZODONE HYDROCHLORIDE
     Dosage: 25.0 MG, QD
     Route: 048
  8. OXINORM [Concomitant]
     Indication: ADENOSQUAMOUS CELL LUNG CANCER
     Dosage: 5 MG, PRN
     Route: 048
  9. OXYCONTIN [Concomitant]
     Active Substance: OXYCODONE HYDROCHLORIDE
     Indication: ADENOSQUAMOUS CELL LUNG CANCER
     Dosage: 10 MG, BID
     Route: 048
     Dates: end: 20170612
  10. CALONAL [Concomitant]
     Active Substance: ACETAMINOPHEN
     Indication: ADENOSQUAMOUS CELL LUNG CANCER
     Dosage: 400 MG, QID
     Route: 048
     Dates: start: 20180216, end: 20180404
  11. SENNA [Concomitant]
     Active Substance: SENNA LEAF\SENNOSIDES\SENNOSIDES A AND B
     Dosage: 80 MG, PRN
     Route: 048
  12. LOXOPROFEN [Concomitant]
     Active Substance: LOXOPROFEN
     Indication: ADENOSQUAMOUS CELL LUNG CANCER
     Dosage: 60 MG, PRN
     Route: 048
     Dates: end: 20180215
  13. TAKECAB [Concomitant]
     Active Substance: VONOPRAZAN FUMURATE
     Indication: PROPHYLAXIS
     Dosage: 20 MG, QD
     Route: 048
  14. OXYCONTIN [Concomitant]
     Active Substance: OXYCODONE HYDROCHLORIDE
     Dosage: 20 MG, BID
     Route: 048
     Dates: start: 20180228
  15. AZUNOL [Concomitant]
     Active Substance: SODIUM GUALENATE
     Dosage: UNK
     Route: 061
  16. BRECRUS [Concomitant]
     Dosage: 100 MG, TID
     Route: 048
     Dates: end: 20171201
  17. SENIRAN [Concomitant]
     Active Substance: BROMAZEPAM
     Dosage: 2.0 MG, QD
     Route: 048
  18. MAGMITT [Concomitant]
     Active Substance: MAGNESIUM OXIDE
     Dosage: 660 MG, TID
     Route: 048
  19. SALAGEN [Concomitant]
     Active Substance: PILOCARPINE HYDROCHLORIDE
     Dosage: 5.0 MG, TID
     Route: 048
  20. OXYCONTIN [Concomitant]
     Active Substance: OXYCODONE HYDROCHLORIDE
     Dosage: 20 MG, BID
     Route: 048
     Dates: start: 20170613, end: 20170907

REACTIONS (12)
  - Blood creatinine increased [Recovered/Resolved]
  - Pyrexia [Recovered/Resolved]
  - Oedema [Recovering/Resolving]
  - Pyrexia [Recovered/Resolved]
  - Pyrexia [Recovered/Resolved]
  - Anaemia [Recovered/Resolved]
  - Oesophageal ulcer [Not Recovered/Not Resolved]
  - Vomiting [Recovered/Resolved]
  - Nausea [Recovered/Resolved]
  - Anaemia [Recovered/Resolved]
  - Stomatitis radiation [Not Recovered/Not Resolved]
  - Hypoalbuminaemia [Recovered/Resolved]

NARRATIVE: CASE EVENT DATE: 20170608
